FAERS Safety Report 18639777 (Version 1)
Quarter: 2020Q4

REPORT INFORMATION
  Report Type: Report from Study
  Country: CR (occurrence: CR)
  Receive Date: 20201220
  Receipt Date: 20201220
  Transmission Date: 20210114
  Serious: Yes (Other)
  Sender: FDA-Public Use
  Company Number: NVSC2020CR331028

PATIENT
  Age: 78 Year
  Sex: Male

DRUGS (2)
  1. VYMADA [Suspect]
     Active Substance: SACUBITRIL\VALSARTAN
     Indication: CARDIAC FAILURE
     Dosage: 100 MG, STARTED APPROXIMATELY 5 MONTHS AGO
     Route: 065
  2. CORENTEL [Concomitant]
     Indication: PRODUCT USED FOR UNKNOWN INDICATION
     Dosage: 5, UNIT NOT REPORTED
     Route: 065

REACTIONS (3)
  - Blood pressure abnormal [Unknown]
  - Infarction [Unknown]
  - Asthma [Unknown]
